FAERS Safety Report 13713236 (Version 1)
Quarter: 2017Q3

REPORT INFORMATION
  Report Type: Spontaneous
  Country: US (occurrence: US)
  Receive Date: 20170704
  Receipt Date: 20170704
  Transmission Date: 20171127
  Serious: No
  Sender: FDA-Public Use
  Company Number: US-TEVA-733454ACC

PATIENT
  Age: 78 Year
  Sex: Female
  Weight: 82.63 kg

DRUGS (2)
  1. PREDNISONE. [Suspect]
     Active Substance: PREDNISONE
     Indication: ASTHMA
     Dates: start: 20161120
  2. PREDNISONE. [Suspect]
     Active Substance: PREDNISONE
     Indication: EMPHYSEMA

REACTIONS (1)
  - Oral herpes [Unknown]

NARRATIVE: CASE EVENT DATE: 20161120
